FAERS Safety Report 4825968-0 (Version None)
Quarter: 2005Q4

REPORT INFORMATION
  Report Type: 
  Country: None (occurrence: None)
  Receive Date: 20051111
  Receipt Date: 20050929
  Transmission Date: 20060501
  Serious: Yes (Disabling)
  Sender: FDA-Public Use
  Company Number: DE-ABBOTT-05P-062-0312807-00

PATIENT
  Sex: Female

DRUGS (1)
  1. BIAXIN [Suspect]
     Indication: TONSILLITIS
     Dates: start: 19970101, end: 19970101

REACTIONS (8)
  - ANAEMIA [None]
  - DIARRHOEA [None]
  - GASTRITIS [None]
  - GASTROINTESTINAL HAEMORRHAGE [None]
  - GASTROINTESTINAL INJURY [None]
  - INFLAMMATORY BOWEL DISEASE [None]
  - MUSCLE SPASMS [None]
  - VOMITING [None]
